FAERS Safety Report 17645901 (Version 1)
Quarter: 2020Q2

REPORT INFORMATION
  Report Type: Spontaneous
  Country: CN (occurrence: CN)
  Receive Date: 20200408
  Receipt Date: 20200408
  Transmission Date: 20200713
  Serious: Yes (Life-Threatening, Other)
  Sender: FDA-Public Use
  Company Number: CN-ASTRAZENECA-2020SE47890

PATIENT
  Age: 65 Year
  Sex: Female
  Weight: 87 kg

DRUGS (1)
  1. TICAGRELOR. [Suspect]
     Active Substance: TICAGRELOR
     Indication: ACUTE CORONARY SYNDROME
     Route: 048
     Dates: start: 20200204, end: 20200306

REACTIONS (3)
  - Dyspnoea [Recovered/Resolved]
  - Chest discomfort [Recovered/Resolved]
  - Cardiac failure [Recovering/Resolving]

NARRATIVE: CASE EVENT DATE: 2020
